FAERS Safety Report 17069722 (Version 1)
Quarter: 2019Q4

REPORT INFORMATION
  Report Type: Spontaneous
  Country: US (occurrence: US)
  Receive Date: 20191125
  Receipt Date: 20191125
  Transmission Date: 20200122
  Serious: No
  Sender: FDA-Public Use
  Company Number: US-BIOGEN-2019BI00776131

PATIENT
  Sex: Female
  Weight: 136.2 kg

DRUGS (5)
  1. PLEGRIDY [Suspect]
     Active Substance: PEGINTERFERON BETA-1A
     Route: 058
     Dates: start: 2015, end: 2017
  2. PLEGRIDY [Suspect]
     Active Substance: PEGINTERFERON BETA-1A
     Indication: MULTIPLE SCLEROSIS
     Route: 058
     Dates: end: 201701
  3. PLEGRIDY [Suspect]
     Active Substance: PEGINTERFERON BETA-1A
     Route: 065
     Dates: start: 20140114, end: 20140803
  4. PLEGRIDY [Suspect]
     Active Substance: PEGINTERFERON BETA-1A
     Route: 065
     Dates: start: 20150113, end: 20150305
  5. SUMATRIPTAN SUCCINATE. [Concomitant]
     Active Substance: SUMATRIPTAN SUCCINATE
     Route: 065

REACTIONS (26)
  - Stress [Unknown]
  - Choking [Unknown]
  - Cognitive disorder [Not Recovered/Not Resolved]
  - Osteoarthritis [Unknown]
  - Periodic limb movement disorder [Unknown]
  - Spondyloarthropathy [Unknown]
  - Neck pain [Unknown]
  - Paraesthesia [Unknown]
  - Musculoskeletal stiffness [Unknown]
  - Snoring [Unknown]
  - Hypoaesthesia oral [Unknown]
  - Nausea [Unknown]
  - Influenza like illness [Unknown]
  - Vertigo [Unknown]
  - Sleep talking [Unknown]
  - Goitre [Unknown]
  - Sleep apnoea syndrome [Unknown]
  - Fatigue [Unknown]
  - Dyspnoea [Unknown]
  - Carpal tunnel syndrome [Unknown]
  - Intervertebral disc protrusion [Unknown]
  - Central nervous system lesion [Unknown]
  - Depression [Unknown]
  - Hypersomnia [Unknown]
  - Burning sensation [Unknown]
  - Arthralgia [Unknown]
